FAERS Safety Report 9530275 (Version 1)
Quarter: 2013Q3

REPORT INFORMATION
  Report Type: Report from Study
  Country: FR (occurrence: FR)
  Receive Date: 20130917
  Receipt Date: 20130917
  Transmission Date: 20140515
  Serious: Yes (Other)
  Sender: FDA-Public Use
  Company Number: FR-UCBSA-097712

PATIENT
  Age: 59 Year
  Sex: Female
  Weight: 66 kg

DRUGS (2)
  1. CIMZIA [Suspect]
     Indication: RHEUMATOID ARTHRITIS
     Route: 058
     Dates: start: 201208, end: 20130415
  2. ARAVA [Concomitant]
     Indication: RHEUMATOID ARTHRITIS
     Dates: start: 200904

REACTIONS (2)
  - Psoriasis [Not Recovered/Not Resolved]
  - Lung infection [Recovered/Resolved]
